FAERS Safety Report 9565377 (Version 1)
Quarter: 2013Q3

REPORT INFORMATION
  Report Type: Spontaneous
  Country: CA (occurrence: CA)
  Receive Date: 20130930
  Receipt Date: 20130930
  Transmission Date: 20140515
  Serious: Yes (Hospitalization, Other)
  Sender: FDA-Public Use
  Company Number: CA-PFIZER INC-2013278054

PATIENT
  Sex: Male

DRUGS (1)
  1. LYRICA [Suspect]

REACTIONS (4)
  - Cardiac disorder [Unknown]
  - Cardiac failure congestive [Not Recovered/Not Resolved]
  - Swelling [Not Recovered/Not Resolved]
  - Memory impairment [Not Recovered/Not Resolved]
